FAERS Safety Report 9157560 (Version 3)
Quarter: 2013Q4

REPORT INFORMATION
  Report Type: Spontaneous
  Country: US (occurrence: US)
  Receive Date: 20130312
  Receipt Date: 20131029
  Transmission Date: 20140711
  Serious: Yes (Other)
  Sender: FDA-Public Use
  Company Number: US-RB-050760-13

PATIENT
  Age: 33 Year
  Sex: Male

DRUGS (3)
  1. SUBUTEX [Suspect]
     Indication: PAIN
     Dosage: UNKNOWN DOSAGE DETAILS
     Route: 065
  2. SUBOXONE TABLET [Suspect]
     Indication: PAIN
     Dosage: DOSING DETAILS UNKNOWN
     Route: 065
  3. BUPRENORPHINE/NALOXONE GENERIC [Suspect]
     Indication: PAIN
     Dosage: DOSING DETAILS UNKNOWN
     Route: 065

REACTIONS (14)
  - Haematemesis [Unknown]
  - Drug withdrawal syndrome [Not Recovered/Not Resolved]
  - Off label use [Not Recovered/Not Resolved]
  - Anxiety [Unknown]
  - Back pain [Unknown]
  - Asthenia [Unknown]
  - Insomnia [Unknown]
  - Tremor [Unknown]
  - Psychomotor hyperactivity [Unknown]
  - Feeling abnormal [Unknown]
  - Substance abuse [Not Recovered/Not Resolved]
  - Vomiting [Not Recovered/Not Resolved]
  - Diarrhoea [Not Recovered/Not Resolved]
  - Malaise [Not Recovered/Not Resolved]
